FAERS Safety Report 6360887-2 (Version None)
Quarter: 2009Q3

REPORT INFORMATION
  Report Type: 
  Country: None (occurrence: None)
  Receive Date: 20090915
  Receipt Date: 20090915
  Transmission Date: 20100115
  Serious: Yes (Hospitalization)
  Sender: FDA-Public Use
  Company Number: None

PATIENT
  Age: 69 Year
  Sex: Male

DRUGS (1)
  1. DASATINIB [Suspect]
     Indication: PROSTATE CANCER
     Dosage: 70 MG EVERYDAY PO
     Route: 048
     Dates: start: 20090911

REACTIONS (1)
  - ABDOMINAL PAIN [None]
